FAERS Safety Report 11533317 (Version 1)
Quarter: 2015Q3

REPORT INFORMATION
  Report Type: Spontaneous
  Country: US (occurrence: US)
  Receive Date: 20150921
  Receipt Date: 20150921
  Transmission Date: 20151125
  Serious: No
  Sender: FDA-Public Use
  Company Number: US-ALLERGAN-1422786US

PATIENT
  Age: 6 Decade
  Sex: Female

DRUGS (1)
  1. LASTACAFT [Suspect]
     Active Substance: ALCAFTADINE
     Indication: SEASONAL ALLERGY

REACTIONS (5)
  - Ocular hyperaemia [Recovered/Resolved]
  - Erythema of eyelid [Recovered/Resolved]
  - Eyelid oedema [Recovered/Resolved]
  - Eye discharge [Recovered/Resolved]
  - Eye pain [Recovered/Resolved]
